FAERS Safety Report 19196143 (Version 1)
Quarter: 2021Q2

REPORT INFORMATION
  Report Type: Spontaneous
  Country: US (occurrence: US)
  Receive Date: 20210429
  Receipt Date: 20210429
  Transmission Date: 20210717
  Serious: Yes (Other)
  Sender: FDA-Public Use
  Company Number: US-MYLANLABS-2021M1024121

PATIENT
  Age: 81 Year
  Sex: Male
  Weight: 75 kg

DRUGS (3)
  1. MESALAMINE RECTAL SUSPENSION ENEMA [Suspect]
     Active Substance: MESALAMINE
     Indication: COLONOSCOPY ABNORMAL
     Dosage: UNK, HS (1 DOSE IN EVENING AT BEDTIME)
     Route: 054
     Dates: start: 20210412, end: 20210418
  2. LINZESS [Concomitant]
     Active Substance: LINACLOTIDE
  3. DICYCLOMINE                        /00068601/ [Concomitant]
     Active Substance: DICYCLOMINE HYDROCHLORIDE

REACTIONS (4)
  - Flatulence [Not Recovered/Not Resolved]
  - Diarrhoea [Not Recovered/Not Resolved]
  - Abdominal distension [Not Recovered/Not Resolved]
  - Haematochezia [Not Recovered/Not Resolved]

NARRATIVE: CASE EVENT DATE: 20210412
